FAERS Safety Report 10573649 (Version 1)
Quarter: 2014Q4

REPORT INFORMATION
  Report Type: Spontaneous
  Country: ES (occurrence: ES)
  Receive Date: 20141110
  Receipt Date: 20141110
  Transmission Date: 20150529
  Serious: No
  Sender: FDA-Public Use
  Company Number: ES-JNJFOC-20141102028

PATIENT
  Age: 79 Year
  Sex: Female
  Weight: 90 kg

DRUGS (9)
  1. PAROXETINE [Concomitant]
     Active Substance: PAROXETINE\PAROXETINE HYDROCHLORIDE
     Indication: DEPRESSION
     Route: 048
  2. XARELTO [Suspect]
     Active Substance: RIVAROXABAN
     Indication: COAGULOPATHY
     Route: 048
     Dates: start: 20140613
  3. LYRICA [Concomitant]
     Active Substance: PREGABALIN
     Indication: PAIN
     Route: 048
  4. ACETYLSALICYLIC ACID [Concomitant]
     Active Substance: ASPIRIN
     Indication: ATRIAL FIBRILLATION
     Route: 048
     Dates: start: 20110419
  5. BISOPROLOL [Concomitant]
     Active Substance: BISOPROLOL
     Indication: DIASTOLIC HYPERTENSION
     Route: 048
     Dates: start: 20120620
  6. VALSARTAN. [Concomitant]
     Active Substance: VALSARTAN
     Indication: DIASTOLIC HYPERTENSION
     Route: 048
     Dates: start: 20121219
  7. ACETYLSALICYLIC ACID [Concomitant]
     Active Substance: ASPIRIN
     Indication: ARRHYTHMIA
     Route: 048
     Dates: start: 20110419
  8. ACETYLSALICYLIC ACID [Concomitant]
     Active Substance: ASPIRIN
     Indication: ARRHYTHMIA
     Route: 048
  9. ACETYLSALICYLIC ACID [Concomitant]
     Active Substance: ASPIRIN
     Indication: ATRIAL FIBRILLATION
     Route: 048

REACTIONS (2)
  - Hot flush [Unknown]
  - Insomnia [Unknown]

NARRATIVE: CASE EVENT DATE: 20140620
